FAERS Safety Report 7568042-5 (Version None)
Quarter: 2011Q2

REPORT INFORMATION
  Report Type: 
  Country: None (occurrence: None)
  Receive Date: 20110623
  Receipt Date: 20110609
  Transmission Date: 20111010
  Serious: Yes (Hospitalization, Other)
  Sender: FDA-Public Use
  Company Number: JP-CELGENEUS-087-21880-11011438

PATIENT
  Sex: Female
  Weight: 61.2 kg

DRUGS (27)
  1. REVLIMID [Suspect]
     Dosage: 15 MILLIGRAM
     Route: 048
     Dates: start: 20101021, end: 20101110
  2. DEXAMETHASONE [Suspect]
     Dosage: 40 MILLIGRAM
     Route: 048
     Dates: start: 20100805, end: 20100824
  3. DEXAMETHASONE [Suspect]
     Dosage: 40 MILLIGRAM
     Route: 048
     Dates: start: 20101021, end: 20101110
  4. LANSOPRAZOLE [Concomitant]
     Dosage: 15 MILLIGRAM
     Route: 065
     Dates: start: 20100805, end: 20100826
  5. METHYCOBAL [Concomitant]
     Dosage: 1500 MICROGRAM
     Route: 065
     Dates: start: 20100805, end: 20100826
  6. REVLIMID [Suspect]
     Dosage: 15 MILLIGRAM
     Route: 048
     Dates: start: 20101118, end: 20101201
  7. DEXAMETHASONE [Suspect]
     Dosage: 40 MILLIGRAM
     Route: 048
     Dates: start: 20110415, end: 20110422
  8. WARFARIN SODIUM [Concomitant]
     Indication: PROPHYLAXIS
     Dosage: 15 MILLIGRAM
     Route: 065
     Dates: start: 20100805, end: 20100826
  9. LUPRAC [Concomitant]
     Indication: CARDIAC FAILURE
     Dosage: 2 MILLIGRAM
     Route: 065
     Dates: start: 20100805, end: 20100826
  10. REVLIMID [Suspect]
     Dosage: 25 MILLIGRAM
     Route: 048
     Dates: start: 20100805, end: 20100826
  11. REVLIMID [Suspect]
     Dosage: 10 MILLIGRAM
     Route: 048
     Dates: start: 20110107, end: 20110127
  12. REVLIMID [Suspect]
     Dosage: 10 MILLIGRAM
     Route: 048
     Dates: start: 20110415, end: 20110428
  13. LYRICA [Concomitant]
     Dosage: 300 MILLIGRAM
     Route: 065
     Dates: start: 20100805, end: 20100826
  14. MUCOSOLVAN [Concomitant]
     Dosage: 45 MILLIGRAM
     Route: 048
     Dates: start: 20110324
  15. ASPIRIN [Concomitant]
     Indication: PROPHYLAXIS
     Dosage: 100 MILLIGRAM
     Route: 048
     Dates: start: 20110513
  16. OXYCONTIN [Concomitant]
     Dosage: 160 MILLIGRAM
     Route: 048
     Dates: start: 20110106
  17. DEXAMETHASONE [Suspect]
     Dosage: 40 MILLIGRAM
     Route: 048
     Dates: start: 20101118, end: 20101201
  18. URSO 250 [Concomitant]
     Dosage: 300 MILLIGRAM
     Route: 065
     Dates: start: 20100805, end: 20100826
  19. SULFAMETHOXAZOLE [Concomitant]
     Indication: PROPHYLAXIS
     Route: 048
     Dates: start: 20110106
  20. REVLIMID [Suspect]
     Dosage: 10 MILLIGRAM
     Route: 048
     Dates: start: 20110204, end: 20110217
  21. DEXAMETHASONE [Suspect]
     Dosage: 40 MILLIGRAM
     Route: 048
     Dates: start: 20110107, end: 20110128
  22. MUCODYNE [Concomitant]
     Dosage: 1500 MILLIGRAM
     Route: 065
     Dates: start: 20100805, end: 20100826
  23. LYRICA [Concomitant]
     Dosage: 450 MILLIGRAM
     Route: 048
     Dates: start: 20110106
  24. OXYCONTIN [Concomitant]
     Indication: MULTIPLE MYELOMA
     Dosage: 200 MILLIGRAM
     Route: 065
     Dates: start: 20100805, end: 20100826
  25. LEVEMIR [Concomitant]
     Indication: DIABETES MELLITUS
     Dosage: 14 UNITS
     Route: 058
     Dates: start: 20110414
  26. DEXAMETHASONE [Suspect]
     Dosage: 40 MILLIGRAM
     Route: 048
     Dates: start: 20110204, end: 20110211
  27. LANTUS [Concomitant]
     Indication: DIABETES MELLITUS
     Dosage: 14 UNITS
     Route: 058
     Dates: start: 20110106, end: 20110413

REACTIONS (8)
  - PLATELET COUNT DECREASED [None]
  - ANAEMIA [None]
  - PNEUMONIA [None]
  - BRONCHITIS [None]
  - ASTHMA [None]
  - HERPES ZOSTER [None]
  - BLOOD CREATININE INCREASED [None]
  - NEUTROPHIL COUNT DECREASED [None]
